FAERS Safety Report 10750696 (Version 1)
Quarter: 2015Q1

REPORT INFORMATION
  Report Type: Report from Study
  Country: US (occurrence: None)
  Receive Date: 20150128
  Receipt Date: 20150128
  Transmission Date: 20150721
  Serious: Yes (Hospitalization)
  Sender: FDA-Public Use
  Company Number: RAP-002-2015

PATIENT
  Sex: Male

DRUGS (1)
  1. RP103 (CYSTEAMINE BITARTRATE) [Suspect]
     Active Substance: CYSTEAMINE BITARTRATE
     Indication: CYSTINOSIS
     Dosage: 1 IN 12 HOURS ORAL

REACTIONS (1)
  - Hospitalisation [None]
